FAERS Safety Report 5965773-5 (Version None)
Quarter: 2008Q4

REPORT INFORMATION
  Report Type: 
  Country: None (occurrence: None)
  Receive Date: 20081121
  Receipt Date: 20081114
  Transmission Date: 20090506
  Serious: Yes (Other)
  Sender: FDA-Public Use
  Company Number: 2008SP023349

PATIENT

DRUGS (2)
  1. NOXAFIL [Suspect]
     Indication: CANDIDIASIS
     Dates: start: 20080101, end: 20080101
  2. GLEEVEC [Concomitant]

REACTIONS (3)
  - ATRIAL FLUTTER [None]
  - ELECTROCARDIOGRAM QT PROLONGED [None]
  - SINUS RHYTHM [None]
